FAERS Safety Report 6838022-3 (Version None)
Quarter: 2010Q3

REPORT INFORMATION
  Report Type: 
  Country: None (occurrence: None)
  Receive Date: 20100713
  Receipt Date: 20070530
  Transmission Date: 20110219
  Serious: No
  Sender: FDA-Public Use
  Company Number: US-PFIZER INC-2007046313

PATIENT
  Sex: Female
  Weight: 64.1 kg

DRUGS (6)
  1. CHANTIX [Suspect]
     Indication: SMOKING CESSATION THERAPY
     Route: 048
     Dates: start: 20070201
  2. LIPITOR [Suspect]
     Indication: HYPERLIPIDAEMIA
  3. OMEPRAZOLE [Concomitant]
  4. TEMAZEPAM [Concomitant]
  5. TRICOR [Concomitant]
     Indication: HYPERLIPIDAEMIA
  6. ACETYLSALICYLIC ACID [Concomitant]

REACTIONS (2)
  - ALANINE AMINOTRANSFERASE INCREASED [None]
  - ASPARTATE AMINOTRANSFERASE INCREASED [None]
